FAERS Safety Report 4909873-7 (Version None)
Quarter: 2006Q1

REPORT INFORMATION
  Report Type: 
  Country: None (occurrence: None)
  Receive Date: 20060213
  Receipt Date: 20060202
  Transmission Date: 20060701
  Serious: Yes (Other)
  Sender: FDA-Public Use
  Company Number: PHBS2006JP01828

PATIENT
  Weight: 55 kg

DRUGS (7)
  1. NEORAL [Suspect]
     Indication: MIXED CONNECTIVE TISSUE DISEASE
     Dosage: 200 MG/DAY
     Route: 048
  2. PREDNISOLONE [Concomitant]
  3. COTRIM [Concomitant]
     Route: 048
  4. BENET [Concomitant]
     Route: 048
  5. MYSLEE [Concomitant]
     Route: 048
  6. GASTER [Concomitant]
     Route: 048
  7. JUVELA NICOTINATE [Concomitant]
     Route: 048

REACTIONS (2)
  - DEAFNESS [None]
  - TINNITUS [None]
